FAERS Safety Report 6395024-1 (Version None)
Quarter: 2009Q4

REPORT INFORMATION
  Report Type: 
  Country: None (occurrence: None)
  Receive Date: 20091009
  Receipt Date: 20091001
  Transmission Date: 20100525
  Serious: Yes (Other)
  Sender: FDA-Public Use
  Company Number: BR-PFIZER INC-2009203063

PATIENT
  Age: 59 Year

DRUGS (1)
  1. CELEBRA [Suspect]
     Indication: PELVIC PAIN
     Dosage: UNK

REACTIONS (6)
  - ABASIA [None]
  - CYANOSIS [None]
  - HAEMORRHAGE [None]
  - HYPOAESTHESIA [None]
  - OEDEMA PERIPHERAL [None]
  - VARICOSE VEIN [None]
